FAERS Safety Report 15305070 (Version 2)
Quarter: 2018Q3

REPORT INFORMATION
  Report Type: Spontaneous
  Country: IT (occurrence: IT)
  Receive Date: 20180822
  Receipt Date: 20180830
  Transmission Date: 20181010
  Serious: Yes (Other)
  Sender: FDA-Public Use
  Company Number: IT-BEH-2018093919

PATIENT
  Age: 72 Year
  Sex: Male
  Weight: 90 kg

DRUGS (1)
  1. PRIVIGEN [Suspect]
     Active Substance: HUMAN IMMUNOGLOBULIN G
     Indication: VASCULITIS
     Dosage: 250 MG, TOT (TIME INTERVAL UNIT REPORTED AS ^AS NECESSARY^)
     Route: 042
     Dates: start: 20180731, end: 20180731

REACTIONS (6)
  - Body temperature increased [Recovered/Resolved]
  - Bronchospasm [Recovered/Resolved]
  - Laryngeal oedema [Recovered/Resolved]
  - Tremor [Recovered/Resolved]
  - Secondary immunodeficiency [Recovered/Resolved]
  - Dysphonia [Recovered/Resolved]

NARRATIVE: CASE EVENT DATE: 20180731
